FAERS Safety Report 11208239 (Version 1)
Quarter: 2015Q2

REPORT INFORMATION
  Report Type: Spontaneous
  Country: JP (occurrence: JP)
  Receive Date: 20150622
  Receipt Date: 20150622
  Transmission Date: 20150821
  Serious: Yes (Hospitalization)
  Sender: FDA-Public Use
  Company Number: JP-CELGENE-JPN-2015064053

PATIENT

DRUGS (2)
  1. CARBOPLATIN. [Concomitant]
     Active Substance: CARBOPLATIN
     Indication: SQUAMOUS CELL CARCINOMA OF LUNG
     Route: 041
  2. ABRAXANE [Suspect]
     Active Substance: PACLITAXEL
     Indication: SQUAMOUS CELL CARCINOMA OF LUNG
     Dosage: 100 MILLIGRAM/SQ. METER
     Route: 041

REACTIONS (1)
  - Non-alcoholic steatohepatitis [Unknown]
